FAERS Safety Report 23091398 (Version 1)
Quarter: 2023Q4

REPORT INFORMATION
  Report Type: Spontaneous
  Country: DE (occurrence: DE)
  Receive Date: 20231020
  Receipt Date: 20231020
  Transmission Date: 20240109
  Serious: Yes (Other)
  Sender: FDA-Public Use
  Company Number: DE-Merck Healthcare KGaA-2023478508

PATIENT
  Sex: Female

DRUGS (3)
  1. HYDROMORPHONE HYDROCHLORIDE [Suspect]
     Active Substance: HYDROMORPHONE HYDROCHLORIDE
     Indication: Pain
     Dosage: 16 MILLIGRAM (0.5 PER DAY)
     Route: 048
  2. HYDROMORPHONE HYDROCHLORIDE [Suspect]
     Active Substance: HYDROMORPHONE HYDROCHLORIDE
     Dosage: 32 MILLIGRAM  (0.5 PER DAY)
     Route: 048
  3. MORPHINE HYDROCHLORIDE [Suspect]
     Active Substance: MORPHINE HYDROCHLORIDE
     Indication: Pain
     Dosage: MORPHIN MERCK TROPFEN 0.5 PERCENT  (0.5 PER DAY)
     Route: 048
     Dates: start: 20201223

REACTIONS (4)
  - Formication [Unknown]
  - Drug withdrawal convulsions [Unknown]
  - Paraesthesia [Unknown]
  - Product prescribing error [Recovered/Resolved]
